FAERS Safety Report 8912098 (Version 1)
Quarter: 2012Q4

REPORT INFORMATION
  Report Type: 
  Country: US (occurrence: US)
  Receive Date: 20121115
  Receipt Date: 20121115
  Transmission Date: 20130627
  Serious: Yes (Death)
  Sender: FDA-Public Use
  Company Number: US-ROXANE LABORATORIES, INC.-2012-RO-02366RO

PATIENT
  Age: 32 Year
  Sex: Male

DRUGS (3)
  1. METHADONE [Suspect]
  2. IBOGAINE [Suspect]
     Indication: DRUG DETOXIFICATION
  3. COCAINE [Suspect]

REACTIONS (1)
  - Toxicity to various agents [Fatal]
